FAERS Safety Report 6640090-9 (Version None)
Quarter: 2010Q1

REPORT INFORMATION
  Report Type: 
  Country: None (occurrence: None)
  Receive Date: 20100318
  Receipt Date: 20100310
  Transmission Date: 20100710
  Serious: Yes (Death)
  Sender: FDA-Public Use
  Company Number: JP-ROCHE-668505

PATIENT
  Age: 34 Year
  Sex: Female

DRUGS (1)
  1. TAMIFLU [Suspect]
     Indication: INFLUENZA
     Dosage: STOP DATE: 2009
     Route: 048
     Dates: start: 20091031

REACTIONS (2)
  - DISEASE PROGRESSION [None]
  - MYOCARDITIS [None]
